FAERS Safety Report 7860199-1 (Version None)
Quarter: 2011Q4

REPORT INFORMATION
  Report Type: 
  Country: None (occurrence: None)
  Receive Date: 20111027
  Receipt Date: 20111021
  Transmission Date: 20120403
  Serious: Yes (Other)
  Sender: FDA-Public Use
  Company Number: US-TEVA-306311USA

PATIENT
  Sex: Female

DRUGS (2)
  1. CLARAVIS [Suspect]
     Dosage: 30 MILLIGRAM;
     Dates: start: 20110101
  2. CLARAVIS [Suspect]
     Dosage: 30 MILLIGRAM;
     Dates: start: 20081121, end: 20090201

REACTIONS (1)
  - UNINTENDED PREGNANCY [None]
